FAERS Safety Report 9163735 (Version 1)
Quarter: 2013Q1

REPORT INFORMATION
  Report Type: Spontaneous
  Country: US (occurrence: US)
  Receive Date: 20130314
  Receipt Date: 20130314
  Transmission Date: 20140127
  Serious: Yes (Hospitalization, Other)
  Sender: FDA-Public Use
  Company Number: US-PFIZER INC-2013085238

PATIENT
  Age: 84 Year
  Sex: Female
  Weight: 63.49 kg

DRUGS (4)
  1. LIPITOR [Suspect]
     Dosage: 40 MG, 1X/DAY
  2. LISINOPRIL [Suspect]
     Indication: HYPERTENSION
     Dosage: 5 MG, UNK
  3. PLAVIX [Concomitant]
     Dosage: 25 MG, UNK
  4. ASPIRIN [Concomitant]
     Dosage: 81 MG, UNK

REACTIONS (11)
  - Hypoaesthesia [Recovering/Resolving]
  - Dysarthria [Recovering/Resolving]
  - Dehydration [Recovering/Resolving]
  - Transient ischaemic attack [Unknown]
  - Carotid artery stenosis [Unknown]
  - Dementia [Unknown]
  - Angiopathy [Unknown]
  - Hypertension [Unknown]
  - Muscle spasms [Unknown]
  - Headache [Unknown]
  - Vomiting [Unknown]
